FAERS Safety Report 9844315 (Version 3)
Quarter: 2014Q1

REPORT INFORMATION
  Report Type: Spontaneous
  Country: FR (occurrence: FR)
  Receive Date: 20140127
  Receipt Date: 20140224
  Transmission Date: 20141002
  Serious: Yes (Death, Other)
  Sender: FDA-Public Use
  Company Number: FR-BRISTOL-MYERS SQUIBB COMPANY-20035366

PATIENT
  Age: 66 Year
  Sex: Male

DRUGS (7)
  1. YERVOY [Suspect]
     Indication: METASTATIC MALIGNANT MELANOMA
     Dates: start: 20131219
  2. CORGARD [Concomitant]
  3. COVERSYL [Concomitant]
  4. CRESTOR [Concomitant]
  5. XARELTO [Concomitant]
  6. ZYLORIC [Concomitant]
  7. METFORMINE [Concomitant]

REACTIONS (3)
  - Multi-organ failure [Fatal]
  - Liver function test abnormal [Unknown]
  - Platelet count decreased [Unknown]
